FAERS Safety Report 20994211 (Version 1)
Quarter: 2022Q2

REPORT INFORMATION
  Report Type: Report from Study
  Country: DE (occurrence: DE)
  Receive Date: 20220622
  Receipt Date: 20220622
  Transmission Date: 20220721
  Serious: Yes (Hospitalization, Other)
  Sender: FDA-Public Use
  Company Number: DE-JNJFOC-20190805636

PATIENT
  Age: 5 Decade
  Sex: Female

DRUGS (12)
  1. CELECOXIB [Suspect]
     Active Substance: CELECOXIB
     Indication: Ankylosing spondylitis
     Dosage: 200 MILLIGRAM (7 DAYS PER WEEK)
     Dates: start: 20170918, end: 20181105
  2. CELECOXIB [Suspect]
     Active Substance: CELECOXIB
     Indication: Axial spondyloarthritis
     Dosage: 200 MILLIGRAM (7 DAYS PER WEEK)
     Dates: start: 20191107, end: 20201215
  3. CELECOXIB [Suspect]
     Active Substance: CELECOXIB
     Dosage: 800 MILLIGRAM (7 DAYS PER WEEK)
     Dates: start: 20190101, end: 20190501
  4. SIMPONI [Suspect]
     Active Substance: GOLIMUMAB
     Indication: Ankylosing spondylitis
     Dosage: 50 MILLIGRAM, Q6W
     Dates: start: 20191128
  5. SIMPONI [Suspect]
     Active Substance: GOLIMUMAB
     Indication: Axial spondyloarthritis
     Dosage: 100 MILLIGRAM, Q4W
     Dates: start: 20210615, end: 20210815
  6. SIMPONI [Suspect]
     Active Substance: GOLIMUMAB
     Dosage: 50 MILLIGRAM, Q4W
     Dates: start: 20200502, end: 20210515
  7. SIMPONI [Suspect]
     Active Substance: GOLIMUMAB
     Dosage: 50 MILLIGRAM, Q4W
     Dates: start: 20180226, end: 20191010
  8. NAPROXEN [Suspect]
     Active Substance: NAPROXEN
     Indication: Axial spondyloarthritis
     Dosage: 500 MILLIGRAM, QD (QD 7 DAYS PER WEEK)
     Dates: start: 20210608
  9. INFLIXIMAB [Suspect]
     Active Substance: INFLIXIMAB
     Indication: Ankylosing spondylitis
     Dosage: 5 MILLIGRAM, QW
     Route: 048
     Dates: start: 20120101, end: 20181105
  10. INFLIXIMAB [Suspect]
     Active Substance: INFLIXIMAB
     Indication: Axial spondyloarthritis
     Dosage: 5 MILLIGRAM, QW
     Route: 048
     Dates: start: 20190404
  11. INFLIXIMAB [Suspect]
     Active Substance: INFLIXIMAB
     Dosage: 120 MILLIGRAM, BIWEEKLY
     Dates: start: 20210915
  12. ACEMETACIN [Concomitant]
     Active Substance: ACEMETACIN
     Dosage: 180 MILLIGRAM
     Dates: start: 20181105, end: 20181108

REACTIONS (18)
  - Intervertebral disc protrusion [Recovered/Resolved]
  - Residual urine volume increased [Recovered/Resolved]
  - Back pain [Recovered/Resolved]
  - Diagnostic procedure [Recovered/Resolved]
  - Postoperative adhesion [Recovered/Resolved]
  - Axial spondyloarthritis [Recovered/Resolved]
  - Rotator cuff syndrome [Recovered/Resolved]
  - Hypertonic bladder [Unknown]
  - Osteochondrosis [Recovered/Resolved]
  - Multiple sclerosis [Unknown]
  - Functional gastrointestinal disorder [Unknown]
  - Upper respiratory tract infection [Unknown]
  - Urinary tract infection [Unknown]
  - Ovarian cyst [Unknown]
  - Laryngitis [Unknown]
  - Rash [Unknown]
  - Gastritis [Unknown]
  - Off label use [Unknown]

NARRATIVE: CASE EVENT DATE: 20190304
